FAERS Safety Report 20819073 (Version 2)
Quarter: 2022Q2

REPORT INFORMATION
  Report Type: Report from Study
  Country: US (occurrence: US)
  Receive Date: 20220512
  Receipt Date: 20220608
  Transmission Date: 20220721
  Serious: Yes (Other)
  Sender: FDA-Public Use
  Company Number: US-drreddys-CLI/USA/22/0149685

PATIENT
  Age: 17 Year
  Sex: Female

DRUGS (3)
  1. ZENATANE [Suspect]
     Active Substance: ISOTRETINOIN
     Indication: Product used for unknown indication
     Dosage: RMA ISSUE DATE: 03 JULY 2021 12:44:08 PM, 31 JULY 2021 11:48:56 AM, 07 DECEMBER 2021 02:56:16 PM, 28
     Dates: start: 20210703, end: 202203
  2. ZENATANE [Suspect]
     Active Substance: ISOTRETINOIN
     Dosage: RMA ISSUE DATE: 03 SEPTEMBER 2021 05:01:58 PM, 02 OCTOBER 2021 01:14:30 PM, 01 NOVEMBER 2021 02:54:3
  3. Lo Loestrin Fe OCP [Concomitant]
     Indication: Product used for unknown indication

REACTIONS (1)
  - Exposure during pregnancy [Unknown]

NARRATIVE: CASE EVENT DATE: 20220428
